FAERS Safety Report 22606789 (Version 1)
Quarter: 2023Q2

REPORT INFORMATION
  Report Type: Spontaneous
  Country: US (occurrence: US)
  Receive Date: 20230615
  Receipt Date: 20230615
  Transmission Date: 20230721
  Serious: No
  Sender: FDA-Public Use
  Company Number: US-009507513-2305USA007480

PATIENT
  Age: 32 Year
  Sex: Male

DRUGS (3)
  1. BELSOMRA [Suspect]
     Active Substance: SUVOREXANT
     Indication: Insomnia
     Dosage: 20MG 1XDAILY
     Route: 048
     Dates: start: 2022, end: 202303
  2. BELSOMRA [Suspect]
     Active Substance: SUVOREXANT
     Dosage: STRENGHT: 10 MG; 10MG 1XDAILY
     Route: 048
     Dates: start: 202303
  3. CLONAZEPAM [Concomitant]
     Active Substance: CLONAZEPAM

REACTIONS (2)
  - Therapeutic product effect decreased [Not Recovered/Not Resolved]
  - Contraindicated product administered [Unknown]

NARRATIVE: CASE EVENT DATE: 20230301
